FAERS Safety Report 4479240-1 (Version None)
Quarter: 2004Q4

REPORT INFORMATION
  Report Type: 
  Country: None (occurrence: None)
  Receive Date: 20041015
  Receipt Date: 20041005
  Transmission Date: 20050328
  Serious: Yes (Other)
  Sender: FDA-Public Use
  Company Number: HQWYE643908OCT04

PATIENT
  Age: 73 Year
  Sex: Female

DRUGS (6)
  1. PROTONIX [Suspect]
     Indication: GASTROOESOPHAGEAL REFLUX DISEASE
     Dosage: 40 MG 1 X PER 1 DAY, ORAL
     Route: 048
  2. ADVIL [Suspect]
     Indication: HEADACHE
     Dosage: 2 TABLET 2X PER 1 DAY
     Dates: start: 20040101, end: 20040901
  3. ATENOLOL [Concomitant]
  4. CLONAZEPAM [Concomitant]
  5. ACYCLOVIR [Concomitant]
  6. PREMARIN [Concomitant]

REACTIONS (8)
  - CEREBROVASCULAR ACCIDENT [None]
  - CONDITION AGGRAVATED [None]
  - DIARRHOEA [None]
  - DRUG INEFFECTIVE [None]
  - FATIGUE [None]
  - HEADACHE [None]
  - HERPES SIMPLEX [None]
  - STOMACH DISCOMFORT [None]
